FAERS Safety Report 7943139-6 (Version None)
Quarter: 2011Q4

REPORT INFORMATION
  Report Type: 
  Country: None (occurrence: None)
  Receive Date: 20111128
  Receipt Date: 20111116
  Transmission Date: 20120403
  Serious: Yes (Disabling)
  Sender: FDA-Public Use
  Company Number: PHFR2011GB03046

PATIENT
  Sex: Male

DRUGS (10)
  1. LEVOTHYROXINE SODIUM [Concomitant]
     Indication: THYROID HORMONE REPLACEMENT THERAPY
     Dosage: 225 UG/DAY
     Route: 048
  2. SIMVASTATIN [Concomitant]
     Indication: LIPIDS ABNORMAL
     Dosage: 40 MG/DAY
     Route: 048
  3. LEVETIRACETAM [Concomitant]
     Dosage: 750 MG, BID
     Route: 048
  4. VALPROATE SODIUM [Concomitant]
     Indication: EPILEPSY
     Dosage: 500 MG, BID
     Route: 048
  5. CLOZARIL [Suspect]
     Indication: SCHIZOPHRENIA
     Route: 048
     Dates: start: 20101110
  6. OMEPRAZOLE [Concomitant]
     Indication: GASTROINTESTINAL DISORDER
     Dosage: 20 MG/DAY
     Route: 048
  7. ARIPIPRAZOLE [Concomitant]
     Dosage: 10 MG/DAY
     Route: 065
  8. CLOZARIL [Suspect]
     Dosage: 300 MG/DAY
     Route: 048
     Dates: start: 20110627
  9. LAMOTRIGINE [Concomitant]
     Indication: EPILEPSY
     Dosage: 200 MG, BID
     Route: 048
  10. HYOSCINE [Concomitant]
     Dosage: 300 UG, BID
     Route: 065

REACTIONS (4)
  - LYMPHOCYTE COUNT INCREASED [None]
  - WHITE BLOOD CELL COUNT INCREASED [None]
  - MONOCYTE COUNT INCREASED [None]
  - CHRONIC LYMPHOCYTIC LEUKAEMIA [None]
